FAERS Safety Report 4448050-3 (Version None)
Quarter: 2004Q3

REPORT INFORMATION
  Report Type: 
  Country: None (occurrence: None)
  Receive Date: 20040817
  Receipt Date: 20040716
  Transmission Date: 20050211
  Serious: Yes (Other)
  Sender: FDA-Public Use
  Company Number: PHEH2004US05214

PATIENT
  Age: 79 Year
  Sex: Female

DRUGS (3)
  1. DIOVAN [Suspect]
     Indication: HYPERTENSION
     Dosage: 80 + 160 MG, QD, ORAL
     Route: 048
     Dates: start: 20040419, end: 20040504
  2. DIOVAN [Suspect]
     Indication: HYPERTENSION
     Dosage: 80 + 160 MG, QD, ORAL
     Route: 048
     Dates: start: 20040505
  3. HYDROCHLOROTHIAZIDE [Concomitant]

REACTIONS (3)
  - BLOOD PRESSURE INCREASED [None]
  - DRY MOUTH [None]
  - STRESS SYMPTOMS [None]
